FAERS Safety Report 5729841-5 (Version None)
Quarter: 2008Q2

REPORT INFORMATION
  Report Type: 
  Country: None (occurrence: None)
  Receive Date: 20080501
  Receipt Date: 20080419
  Transmission Date: 20081010
  Serious: Yes (Hospitalization)
  Sender: FDA-Public Use
  Company Number: DSA_31685_2008

PATIENT
  Age: 78 Year
  Sex: Female

DRUGS (2)
  1. TILDIEM (TILDIEM - DILTIAZEM HYDROCHLORIDE) (NOT SPECIFIED) [Suspect]
     Indication: DRUG USE FOR UNKNOWN INDICATION
     Dosage: 90 MG TID ORAL
     Route: 048
     Dates: start: 20070101
  2. CAPOTEN [Suspect]
     Indication: DRUG USE FOR UNKNOWN INDICATION
     Dosage: DF ORAL
     Route: 048
     Dates: start: 20070101, end: 20071101

REACTIONS (1)
  - LICHENOID KERATOSIS [None]
